FAERS Safety Report 5483371-7 (Version None)
Quarter: 2007Q4

REPORT INFORMATION
  Report Type: 
  Country: None (occurrence: None)
  Receive Date: 20071012
  Receipt Date: 20071004
  Transmission Date: 20080405
  Serious: Yes (Hospitalization)
  Sender: FDA-Public Use
  Company Number: NL-JNJFOC-20071001660

PATIENT
  Age: 33 Year
  Sex: Female

DRUGS (8)
  1. RISPERDAL CONSTA [Suspect]
     Indication: SCHIZOPHRENIA
     Route: 030
  2. PARACETAMOL [Suspect]
     Route: 048
  3. PARACETAMOL [Suspect]
     Indication: POISONING
     Route: 048
  4. AKINETON [Concomitant]
  5. EFFEXOR [Concomitant]
  6. OXAZEPAM [Concomitant]
  7. OXYBUTININE [Concomitant]
  8. LACTULOSE [Concomitant]

REACTIONS (1)
  - DRUG TOXICITY [None]
